FAERS Safety Report 6493459-X (Version None)
Quarter: 2009Q4

REPORT INFORMATION
  Report Type: 
  Country: None (occurrence: None)
  Receive Date: 20091214
  Receipt Date: 20091203
  Transmission Date: 20100525
  Serious: Yes (Other)
  Sender: FDA-Public Use
  Company Number: BR-PFIZER INC-2009305536

PATIENT
  Age: 65 Year
  Sex: Female
  Weight: 68 kg

DRUGS (7)
  1. LIPITOR [Suspect]
     Indication: BLOOD CHOLESTEROL INCREASED
     Dosage: 20 MG, UNK
     Route: 048
  2. LIPITOR [Suspect]
     Dosage: 40 MG, UNK
  3. LIPITOR [Suspect]
     Dosage: 80 MG, UNK
  4. FISH OIL [Concomitant]
     Dosage: UNK
  5. ATENOLOL [Concomitant]
     Indication: BLOOD PRESSURE INCREASED
     Dosage: UNK
  6. RAMIPRIL [Concomitant]
     Indication: BLOOD PRESSURE INCREASED
     Dosage: UNK
  7. INSULIN [Concomitant]
     Indication: DIABETES MELLITUS
     Dosage: UNK

REACTIONS (2)
  - HEADACHE [None]
  - HYPERTENSION [None]
